FAERS Safety Report 8398736-3 (Version None)
Quarter: 2012Q2

REPORT INFORMATION
  Report Type: 
  Country: None (occurrence: None)
  Receive Date: 20120531
  Receipt Date: 20120524
  Transmission Date: 20120825
  Serious: Yes (Other)
  Sender: FDA-Public Use
  Company Number: PHHY2012CA033967

PATIENT
  Sex: Female

DRUGS (3)
  1. INTERFERON [Concomitant]
  2. CLOZARIL [Suspect]
     Dosage: UNK UKN, UNK
     Dates: start: 20050614
  3. RIBAVIRIN [Concomitant]

REACTIONS (1)
  - WHITE BLOOD CELL COUNT DECREASED [None]
